FAERS Safety Report 5337166-5 (Version None)
Quarter: 2007Q2

REPORT INFORMATION
  Report Type: 
  Country: None (occurrence: None)
  Receive Date: 20070315
  Receipt Date: 20060807
  Transmission Date: 20071010
  Serious: Yes (Other)
  Sender: FDA-Public Use
  Company Number: PHEH2006US10117

PATIENT
  Age: 77 Year
  Sex: Male

DRUGS (4)
  1. TRILEPTAL [Suspect]
     Indication: SPINAL COLUMN STENOSIS
     Dosage: 125 MG BID UNK
     Dates: start: 20060619
  2. COUMADIN [Concomitant]
  3. ENALAPRIL (ENALAPRIL) [Concomitant]
  4. ANTIHYPERTENSIVE DRUGS (NO INGREDIENTS/SUBTANCES) [Concomitant]

REACTIONS (4)
  - CONFUSIONAL STATE [None]
  - MENTAL IMPAIRMENT [None]
  - STOMACH DISCOMFORT [None]
  - THERAPEUTIC RESPONSE UNEXPECTED [None]
